FAERS Safety Report 8111635-7 (Version None)
Quarter: 2012Q1

REPORT INFORMATION
  Report Type: 
  Country: None (occurrence: None)
  Receive Date: 20120202
  Receipt Date: 20120202
  Transmission Date: 20120608
  Serious: Yes (Death)
  Sender: FDA-Public Use
  Company Number: None

PATIENT
  Age: 71 Year
  Sex: Female

DRUGS (13)
  1. FAMOTIDINE [Concomitant]
  2. VITAMIN D [Concomitant]
  3. PREMARIN [Concomitant]
  4. DEXAMETHASONE [Concomitant]
  5. VICODIN [Concomitant]
  6. ATENOLOL [Concomitant]
  7. M.V.I. [Concomitant]
  8. REVLIMID [Suspect]
     Indication: MULTIPLE MYELOMA
     Dosage: 10 MG DAILY X 21/28 DAYS BY MOUTH
     Route: 048
     Dates: start: 20110601, end: 20110701
  9. REVLIMID [Suspect]
     Indication: MULTIPLE MYELOMA
     Dosage: 10 MG DAILY X 21/28 DAYS BY MOUTH
     Route: 048
     Dates: start: 20110401, end: 20110501
  10. ONDANSETRON [Concomitant]
  11. AMLODIPINE [Concomitant]
  12. GARLIC [Concomitant]
  13. VITAMIN E [Concomitant]

REACTIONS (2)
  - DISEASE PROGRESSION [None]
  - RENAL FAILURE [None]
